FAERS Safety Report 9422068 (Version 1)
Quarter: 2013Q3

REPORT INFORMATION
  Report Type: Spontaneous
  Country: US (occurrence: US)
  Receive Date: 20130726
  Receipt Date: 20130726
  Transmission Date: 20140515
  Serious: No
  Sender: FDA-Public Use
  Company Number: US-MYLANLABS-2012S1022928

PATIENT
  Sex: Male

DRUGS (2)
  1. TRAZODONE HYDROCHLORIDE TABLETS USP [Suspect]
     Indication: ANXIETY
     Dates: start: 2005
  2. TRAZODONE HYDROCHLORIDE TABLETS USP [Suspect]
     Indication: OFF LABEL USE
     Dates: start: 2005

REACTIONS (1)
  - Hangover [Recovered/Resolved]
